FAERS Safety Report 21991398 (Version 1)
Quarter: 2023Q1

REPORT INFORMATION
  Report Type: Spontaneous
  Country: AR (occurrence: AR)
  Receive Date: 20230214
  Receipt Date: 20230214
  Transmission Date: 20230417
  Serious: Yes (Life-Threatening)
  Sender: FDA-Public Use
  Company Number: AR-002147023-NVSC2023AR033106

PATIENT
  Sex: Male

DRUGS (4)
  1. TRILEPTAL [Suspect]
     Active Substance: OXCARBAZEPINE
     Indication: Trigeminal neuralgia
     Dosage: 7 X 300 MG, QD
     Route: 048
     Dates: start: 2008
  2. TRILEPTAL [Suspect]
     Active Substance: OXCARBAZEPINE
     Dosage: UNK
     Route: 065
  3. TEGRETOL [Suspect]
     Active Substance: CARBAMAZEPINE
     Indication: Trigeminal neuralgia
     Dosage: 3 X 200 MG, QD
     Route: 048
     Dates: start: 2008, end: 2021
  4. TEGRETOL [Suspect]
     Active Substance: CARBAMAZEPINE
     Dosage: 2 (UNITS NOT PROVIDED), QD
     Route: 065

REACTIONS (13)
  - Somnolence [Unknown]
  - Stupor [Unknown]
  - Anosognosia [Unknown]
  - Emotional distress [Unknown]
  - Pain in jaw [Unknown]
  - Eating disorder [Unknown]
  - Presbyopia [Unknown]
  - Electric shock sensation [Unknown]
  - Disturbance in attention [Unknown]
  - Memory impairment [Unknown]
  - Bradyphrenia [Unknown]
  - Tremor [Unknown]
  - Speech disorder [Unknown]
